FAERS Safety Report 20507541 (Version 13)
Quarter: 2025Q1

REPORT INFORMATION
  Report Type: Report from Study
  Country: DE (occurrence: DE)
  Receive Date: 20220223
  Receipt Date: 20250221
  Transmission Date: 20250409
  Serious: Yes (Other)
  Sender: ROCHE
  Company Number: DE-ROCHE-2353123

PATIENT
  Age: 54 Year
  Sex: Female

DRUGS (28)
  1. OCREVUS [Suspect]
     Active Substance: OCRELIZUMAB
     Indication: Primary progressive multiple sclerosis
     Route: 040
     Dates: start: 20180501, end: 20180501
  2. OCREVUS [Suspect]
     Active Substance: OCRELIZUMAB
     Route: 040
     Dates: start: 20180514, end: 20180514
  3. OCREVUS [Suspect]
     Active Substance: OCRELIZUMAB
     Route: 040
     Dates: start: 20181112, end: 20181112
  4. OCREVUS [Suspect]
     Active Substance: OCRELIZUMAB
     Route: 040
     Dates: start: 20190517
  5. OCREVUS [Suspect]
     Active Substance: OCRELIZUMAB
     Route: 040
     Dates: start: 20191122
  6. OCREVUS [Suspect]
     Active Substance: OCRELIZUMAB
     Route: 040
     Dates: start: 20200519
  7. OCREVUS [Suspect]
     Active Substance: OCRELIZUMAB
     Route: 040
     Dates: start: 20210514, end: 20210514
  8. OCREVUS [Suspect]
     Active Substance: OCRELIZUMAB
     Route: 040
  9. COMIRNATY (TOZINAMERAN) [Suspect]
     Active Substance: TOZINAMERAN
     Indication: Product used for unknown indication
     Route: 065
     Dates: start: 20211222
  10. VITAMIN D3 [Concomitant]
     Active Substance: CHOLECALCIFEROL
  11. BACLOFEN [Concomitant]
     Active Substance: BACLOFEN
  12. BACLOFEN [Concomitant]
     Active Substance: BACLOFEN
  13. BACLOFEN [Concomitant]
     Active Substance: BACLOFEN
  14. BACLOFEN [Concomitant]
     Active Substance: BACLOFEN
  15. CORTISONE [Concomitant]
     Active Substance: CORTISONE
  16. LEVODOPA [Concomitant]
     Active Substance: LEVODOPA
  17. CHOLECALCIFEROL [Concomitant]
     Active Substance: CHOLECALCIFEROL
  18. CHOLECALCIFEROL [Concomitant]
     Active Substance: CHOLECALCIFEROL
  19. CHOLECALCIFEROL [Concomitant]
     Active Substance: CHOLECALCIFEROL
  20. CHOLECALCIFEROL [Concomitant]
     Active Substance: CHOLECALCIFEROL
  21. BIOTIN [Concomitant]
     Active Substance: BIOTIN
  22. DALFAMPRIDINE [Concomitant]
     Active Substance: DALFAMPRIDINE
  23. DIENOGEST\ESTRADIOL VALERATE [Concomitant]
     Active Substance: DIENOGEST\ESTRADIOL VALERATE
  24. DIENOGEST\ESTRADIOL VALERATE [Concomitant]
     Active Substance: DIENOGEST\ESTRADIOL VALERATE
  25. DIENOGEST\ESTRADIOL VALERATE [Concomitant]
     Active Substance: DIENOGEST\ESTRADIOL VALERATE
  26. DIENOGEST\ESTRADIOL VALERATE [Concomitant]
     Active Substance: DIENOGEST\ESTRADIOL VALERATE
  27. PROPIONIC ACID [Concomitant]
     Active Substance: PROPIONIC ACID
  28. MIRABEGRON [Concomitant]
     Active Substance: MIRABEGRON

REACTIONS (29)
  - Cystitis noninfective [Recovered/Resolved]
  - Paraesthesia [Recovered/Resolved]
  - Multiple sclerosis relapse [Recovered/Resolved]
  - Vitamin B12 deficiency [Recovered/Resolved]
  - Sleep disorder due to general medical condition, insomnia type [Not Recovered/Not Resolved]
  - Alopecia [Recovered/Resolved]
  - Asthenia [Unknown]
  - Sensory disturbance [Not Recovered/Not Resolved]
  - Nausea [Recovered/Resolved]
  - COVID-19 [Recovered/Resolved]
  - Sleep disorder [Not Recovered/Not Resolved]
  - Bladder disorder [Recovered/Resolved]
  - Inappropriate schedule of product administration [Unknown]
  - Vitamin D deficiency [Not Recovered/Not Resolved]
  - Nasopharyngitis [Recovered/Resolved]
  - Gingival bleeding [Recovered/Resolved]
  - Blood test abnormal [Recovered/Resolved]
  - Pyrexia [Recovered/Resolved]
  - Peroneal nerve palsy [Not Recovered/Not Resolved]
  - Gait disturbance [Recovering/Resolving]
  - Restlessness [Recovered/Resolved]
  - Muscle spasticity [Recovering/Resolving]
  - Fatigue [Not Recovered/Not Resolved]
  - Hypoaesthesia [Recovered/Resolved]
  - Disturbance in attention [Recovered/Resolved]
  - Body temperature increased [Recovered/Resolved]
  - Depression [Not Recovered/Not Resolved]
  - Muscular weakness [Not Recovered/Not Resolved]
  - Muscle spasticity [Not Recovered/Not Resolved]

NARRATIVE: CASE EVENT DATE: 20211231
